FAERS Safety Report 7261897-3 (Version None)
Quarter: 2011Q1

REPORT INFORMATION
  Report Type: 
  Country: None (occurrence: None)
  Receive Date: 20110130
  Receipt Date: 20101213
  Transmission Date: 20110831
  Serious: No
  Sender: FDA-Public Use
  Company Number: US-ABBOTT-10P-163-0691016-00

PATIENT
  Sex: Female
  Weight: 131.66 kg

DRUGS (14)
  1. FOLIC ACID [Concomitant]
     Indication: PRODUCT USED FOR UNKNOWN INDICATION
  2. LEXAPRO [Concomitant]
     Indication: DEPRESSION
  3. OMEPRIZOLE [Concomitant]
     Indication: PRODUCT USED FOR UNKNOWN INDICATION
  4. FUROSEMIDE [Concomitant]
     Indication: PRODUCT USED FOR UNKNOWN INDICATION
  5. ALLOPURINOL [Concomitant]
     Indication: BLOOD URIC ACID INCREASED
  6. AUGMENTIN '125' [Suspect]
     Indication: BRONCHITIS
     Dosage: 875/125 MG, TWICE DAILY
     Dates: end: 20101210
  7. METAXALONE [Concomitant]
     Indication: BACK DISORDER
     Dosage: ONCE EVERY 8 HOURS, AS REQUIRED
  8. LEVOTHYROXINE SODIUM [Concomitant]
     Indication: PRODUCT USED FOR UNKNOWN INDICATION
  9. ALISKIREN AND HYDROCHLOROTHIAZIDE [Concomitant]
     Indication: BLOOD PRESSURE
     Dosage: 300/12.5 BP, ONCE DAILY
  10. HUMIRA [Suspect]
     Indication: RHEUMATOID ARTHRITIS
  11. IBEUPROFEN [Concomitant]
     Indication: PRODUCT USED FOR UNKNOWN INDICATION
  12. OMNICEF [Suspect]
     Indication: BRONCHITIS
  13. METHOTREXATE [Concomitant]
     Indication: PRODUCT USED FOR UNKNOWN INDICATION
  14. HYDOCODONE [Concomitant]
     Indication: PRODUCT USED FOR UNKNOWN INDICATION

REACTIONS (3)
  - BRONCHITIS [None]
  - SWELLING FACE [None]
  - OEDEMA PERIPHERAL [None]
